FAERS Safety Report 6725511-5 (Version None)
Quarter: 2010Q2

REPORT INFORMATION
  Report Type: 
  Country: None (occurrence: None)
  Receive Date: 20100513
  Receipt Date: 20100513
  Transmission Date: 20101027
  Serious: No
  Sender: FDA-Public Use
  Company Number: None

PATIENT
  Age: 60 Year
  Sex: Female
  Weight: 90.7194 kg

DRUGS (1)
  1. PREDNISONE [Suspect]
     Indication: ASTHMA
     Dosage: 20MG 3 TABS BID FOR 3 DAYS THEN 2 TABS BID FOR 6 DAYS PO
     Route: 048
     Dates: start: 20091224

REACTIONS (2)
  - ARTHRALGIA [None]
  - GAIT DISTURBANCE [None]
